FAERS Safety Report 4941734-X (Version None)
Quarter: 2006Q1

REPORT INFORMATION
  Report Type: 
  Country: None (occurrence: None)
  Receive Date: 20060308
  Receipt Date: 20060223
  Transmission Date: 20060701
  Serious: Yes (Other)
  Sender: FDA-Public Use
  Company Number: 2006027826

PATIENT
  Sex: Male

DRUGS (2)
  1. ZMAX [Suspect]
     Indication: EAR INFECTION
     Dosage: 2 GRAM (2 GRAM, 1 IN 1 D)
     Dates: start: 20060220, end: 20060220
  2. BENADRYL [Suspect]
     Indication: URTICARIA
     Dates: start: 20060222

REACTIONS (4)
  - DRUG INEFFECTIVE [None]
  - HYPERSENSITIVITY [None]
  - SOMNOLENCE [None]
  - SUDDEN ONSET OF SLEEP [None]
